FAERS Safety Report 15515326 (Version 1)
Quarter: 2018Q4

REPORT INFORMATION
  Report Type: Not Available
  Country: US (occurrence: US)
  Receive Date: 20181017
  Receipt Date: 20181017
  Transmission Date: 20190205
  Serious: No
  Sender: FDA-Public Use
  Company Number: US-NEUROCRINE BIOSCIENCES INC.-2018NBI02890

PATIENT
  Sex: Male

DRUGS (1)
  1. INGREZZA [Suspect]
     Active Substance: VALBENAZINE
     Indication: TARDIVE DYSKINESIA
     Route: 048
     Dates: start: 20180723, end: 2018

REACTIONS (6)
  - Muscular weakness [Unknown]
  - Somnolence [Unknown]
  - Dehydration [Unknown]
  - Cold sweat [Unknown]
  - Drug ineffective [None]
  - Dry mouth [Unknown]

NARRATIVE: CASE EVENT DATE: 2018
